FAERS Safety Report 25207506 (Version 1)
Quarter: 2025Q2

REPORT INFORMATION
  Report Type: Spontaneous
  Country: GR (occurrence: GR)
  Receive Date: 20250417
  Receipt Date: 20250417
  Transmission Date: 20250717
  Serious: Yes (Hospitalization)
  Sender: ROCHE
  Company Number: GR-BoehringerIngelheim-2025-BI-021440

PATIENT
  Age: 75 Year
  Sex: Male

DRUGS (2)
  1. ALTEPLASE [Suspect]
     Active Substance: ALTEPLASE
     Indication: Pulmonary embolism
     Route: 065
  2. HEPARIN [Concomitant]
     Active Substance: HEPARIN SODIUM
     Indication: Product used for unknown indication

REACTIONS (2)
  - Haemoglobin decreased [Recovered/Resolved]
  - Haematoma [Recovered/Resolved]
